FAERS Safety Report 7943370 (Version 18)
Quarter: 2013Q4

REPORT INFORMATION
  Report Type: Spontaneous
  Country: FR (occurrence: None)
  Receive Date: 20110428
  Receipt Date: 20131212
  Transmission Date: 20140711
  Serious: Yes (Other)
  Sender: FDA-Public Use
  Company Number: JPI-P-008784

PATIENT
  Age: 81 Year
  Sex: Male

DRUGS (4)
  1. XYREM [Suspect]
     Indication: CATAPLEXY
     Dosage: 4.5 GM ( 2.25 G, 2 IN 1 D)
     Route: 048
     Dates: start: 20090824, end: 20091004
  2. XYREM [Suspect]
     Indication: NARCOLEPSY
     Dosage: 4.5 GM ( 2.25 G, 2 IN 1 D)
     Route: 048
     Dates: start: 20090824, end: 20091004
  3. PRAMIPEXOLE DIHYDROCHLORIDE [Suspect]
     Indication: RESTLESS LEGS SYNDROME
     Route: 048
  4. GABAPENTINE (GABAPENTIN) [Concomitant]

REACTIONS (17)
  - Drug dose omission [None]
  - Somnolence [None]
  - Disorientation [None]
  - Balance disorder [None]
  - Fatigue [None]
  - Muscle contractions involuntary [None]
  - Bladder disorder [None]
  - Haematuria [None]
  - Bladder neoplasm [None]
  - Vertigo [None]
  - Fall [None]
  - Dizziness [None]
  - Tremor [None]
  - Cataplexy [None]
  - Bladder cancer stage III [None]
  - Restless legs syndrome [None]
  - Muscular weakness [None]
